FAERS Safety Report 12061056 (Version 2)
Quarter: 2016Q1

REPORT INFORMATION
  Report Type: Spontaneous
  Country: FR (occurrence: FR)
  Receive Date: 20160210
  Receipt Date: 20160224
  Transmission Date: 20160526
  Serious: Yes (Other)
  Sender: FDA-Public Use
  Company Number: FR-GILEAD-2016-0196486

PATIENT
  Age: 46 Year
  Sex: Male

DRUGS (2)
  1. HARVONI [Suspect]
     Active Substance: LEDIPASVIR\SOFOSBUVIR
     Indication: HEPATITIS C
     Dosage: UNK
     Route: 048
     Dates: start: 20150427, end: 20150722
  2. STRIBILD [Concomitant]
     Active Substance: COBICISTAT\ELVITEGRAVIR\EMTRICITABINE\TENOFOVIR DISOPROXIL FUMARATE
     Indication: PRODUCT USED FOR UNKNOWN INDICATION
     Dosage: UNK
     Route: 048
     Dates: start: 201504

REACTIONS (3)
  - Laryngeal cancer [Not Recovered/Not Resolved]
  - Lung neoplasm malignant [Not Recovered/Not Resolved]
  - Dysphonia [Unknown]

NARRATIVE: CASE EVENT DATE: 201512
